FAERS Safety Report 25732028 (Version 1)
Quarter: 2025Q3

REPORT INFORMATION
  Report Type: Spontaneous
  Country: JP (occurrence: JP)
  Receive Date: 20250827
  Receipt Date: 20250827
  Transmission Date: 20251020
  Serious: Yes (Hospitalization, Other)
  Sender: AMGEN
  Company Number: JP-AMGEN-JPNSP2025166154

PATIENT
  Age: 9 Decade

DRUGS (6)
  1. REPATHA [Suspect]
     Active Substance: EVOLOCUMAB
     Indication: Low density lipoprotein increased
     Dosage: UNK UNK, Q2WK
     Route: 058
  2. NICOTINE [Concomitant]
     Active Substance: NICOTINE
  3. LIPITOR [Concomitant]
     Active Substance: ATORVASTATIN CALCIUM
  4. ZETIA [Concomitant]
     Active Substance: EZETIMIBE
  5. ASPIRIN [Concomitant]
     Active Substance: ASPIRIN
  6. REMICADE [Concomitant]
     Active Substance: INFLIXIMAB

REACTIONS (7)
  - Myocardial infarction [Unknown]
  - Coronary artery occlusion [Unknown]
  - Surgery [Unknown]
  - Rash [Unknown]
  - Dry mouth [Not Recovered/Not Resolved]
  - Dental implantation [Unknown]
  - Dizziness [Unknown]
